FAERS Safety Report 4705294-0 (Version None)
Quarter: 2005Q2

REPORT INFORMATION
  Report Type: 
  Country: None (occurrence: None)
  Receive Date: 20050629
  Receipt Date: 20050615
  Transmission Date: 20051028
  Serious: Yes (Death)
  Sender: FDA-Public Use
  Company Number: 2005S1004962

PATIENT
  Age: 79 Year
  Sex: Male

DRUGS (3)
  1. CLOZAPINE [Suspect]
     Dosage: 75 MG;HS; PO
     Route: 048
     Dates: start: 20050609, end: 20050601
  2. CLOZAPINE [Suspect]
     Dosage: 100 MG; QD; PO
     Route: 048
     Dates: start: 20050609, end: 20050601
  3. SERTRALINE HYDROCHLORIDE [Concomitant]

REACTIONS (1)
  - DEATH [None]
